FAERS Safety Report 8725145 (Version 2)
Quarter: 2016Q2

REPORT INFORMATION
  Report Type: Spontaneous
  Country: US (occurrence: US)
  Receive Date: 20120815
  Receipt Date: 20160519
  Transmission Date: 20160815
  Serious: No
  Sender: FDA-Public Use
  Company Number: US-ASTRAZENECA-2012SE55902

PATIENT
  Age: 24164 Day
  Sex: Female
  Weight: 55.8 kg

DRUGS (3)
  1. NEXIUM [Suspect]
     Active Substance: ESOMEPRAZOLE MAGNESIUM
     Indication: GASTROOESOPHAGEAL REFLUX DISEASE
     Route: 048
     Dates: start: 20160302, end: 20160305
  2. NEXIUM [Suspect]
     Active Substance: ESOMEPRAZOLE MAGNESIUM
     Indication: GASTROOESOPHAGEAL REFLUX DISEASE
     Route: 048
     Dates: end: 20160229
  3. NEXIUM [Suspect]
     Active Substance: ESOMEPRAZOLE MAGNESIUM
     Indication: GASTROOESOPHAGEAL REFLUX DISEASE
     Route: 048

REACTIONS (17)
  - Dysphonia [Unknown]
  - Off label use [Unknown]
  - Abdominal discomfort [Unknown]
  - Product quality issue [Unknown]
  - Oesophageal pain [Unknown]
  - Drug dose omission [Unknown]
  - Laryngeal disorder [Unknown]
  - Dysgeusia [Unknown]
  - Condition aggravated [Unknown]
  - Osteoarthritis [Unknown]
  - Musculoskeletal pain [Unknown]
  - Feeling hot [Unknown]
  - Malaise [Unknown]
  - Intentional product misuse [Unknown]
  - Bursitis [Unknown]
  - Nausea [Not Recovered/Not Resolved]
  - Burning sensation [Unknown]

NARRATIVE: CASE EVENT DATE: 20160302
